FAERS Safety Report 25131277 (Version 1)
Quarter: 2025Q1

REPORT INFORMATION
  Report Type: Report from Study
  Country: US (occurrence: US)
  Receive Date: 20250327
  Receipt Date: 20250327
  Transmission Date: 20250409
  Serious: Yes (Other)
  Sender: BAYER HEALTHCARE PHARMACEUTICALS INC.
  Company Number: US-BAYER-2025A003889

PATIENT
  Age: 58 Year
  Sex: Female

DRUGS (3)
  1. STIVARGA [Suspect]
     Active Substance: REGORAFENIB MONOHYDRATE
     Indication: Colorectal cancer metastatic
     Dosage: 160 MG, QD
     Route: 048
  2. STIVARGA [Suspect]
     Active Substance: REGORAFENIB MONOHYDRATE
     Indication: Neutropenia
     Dosage: 80 MG, QD (INCREASED WEEKLY BY 80MG UP TO 160MG)
     Route: 048
  3. STIVARGA [Suspect]
     Active Substance: REGORAFENIB MONOHYDRATE
     Indication: Rectosigmoid cancer

REACTIONS (5)
  - Cerebrovascular accident [Recovering/Resolving]
  - Hepatic function abnormal [Recovering/Resolving]
  - Dysphonia [Recovering/Resolving]
  - Hot flush [Recovering/Resolving]
  - Memory impairment [Recovering/Resolving]
